FAERS Safety Report 22285572 (Version 2)
Quarter: 2023Q2

REPORT INFORMATION
  Report Type: Spontaneous
  Country: US (occurrence: US)
  Receive Date: 20230504
  Receipt Date: 20230508
  Transmission Date: 20230722
  Serious: Yes (Hospitalization)
  Sender: FDA-Public Use
  Company Number: US-SA-SAC20230427001363

PATIENT

DRUGS (1)
  1. LARONIDASE [Suspect]
     Active Substance: LARONIDASE
     Indication: Mucopolysaccharidosis I
     Dosage: 23.2 (UNITS NOT PROVIDED); QW
     Route: 042
     Dates: start: 20171204

REACTIONS (3)
  - Kyphosis [Recovering/Resolving]
  - Back pain [Recovering/Resolving]
  - Pyrexia [Recovered/Resolved]

NARRATIVE: CASE EVENT DATE: 20230427
